FAERS Safety Report 8019585-1 (Version None)
Quarter: 2012Q1

REPORT INFORMATION
  Report Type: 
  Country: None (occurrence: None)
  Receive Date: 20120103
  Receipt Date: 20111222
  Transmission Date: 20120608
  Serious: Yes (Hospitalization)
  Sender: FDA-Public Use
  Company Number: JP-MERCK-1112USA03280

PATIENT
  Age: 59 Year
  Sex: Male

DRUGS (5)
  1. JANUVIA [Suspect]
     Indication: TYPE 2 DIABETES MELLITUS
     Route: 048
     Dates: start: 20111216
  2. METFORMIN HCL [Concomitant]
     Indication: TYPE 2 DIABETES MELLITUS
     Route: 048
     Dates: start: 20111213, end: 20111215
  3. METFORMIN HCL [Concomitant]
     Route: 048
     Dates: start: 20111216
  4. METFORMIN HCL [Concomitant]
     Route: 048
     Dates: end: 20111101
  5. INSULIN [Concomitant]
     Indication: TYPE 2 DIABETES MELLITUS
     Route: 065
     Dates: start: 20111101, end: 20111212

REACTIONS (2)
  - ABDOMINAL PAIN [None]
  - DUODENITIS [None]
